FAERS Safety Report 4355584-9 (Version None)
Quarter: 2004Q2

REPORT INFORMATION
  Report Type: 
  Country: None (occurrence: None)
  Receive Date: 20040510
  Receipt Date: 20040309
  Transmission Date: 20050107
  Serious: Yes (Other)
  Sender: FDA-Public Use
  Company Number: AU-GLAXOSMITHKLINE-B0326454A

PATIENT
  Age: 11 Year
  Sex: Male

DRUGS (3)
  1. SERETIDE [Suspect]
     Route: 055
  2. BRICANYL [Concomitant]
     Route: 065
  3. PULMICORT [Concomitant]
     Route: 065

REACTIONS (4)
  - AGGRESSION [None]
  - DISTURBANCE IN ATTENTION [None]
  - PERSONALITY CHANGE [None]
  - PSYCHOMOTOR HYPERACTIVITY [None]
